FAERS Safety Report 5444558-2 (Version None)
Quarter: 2007Q3

REPORT INFORMATION
  Report Type: 
  Country: None (occurrence: None)
  Receive Date: 20070906
  Receipt Date: 20070829
  Transmission Date: 20080115
  Serious: Yes (Other)
  Sender: FDA-Public Use
  Company Number: BR-AVENTIS-200717985GDDC

PATIENT
  Age: 6 Year
  Sex: Male
  Weight: 20 kg

DRUGS (5)
  1. LANTUS [Suspect]
     Route: 058
     Dates: start: 20040101, end: 20070101
  2. LANTUS [Suspect]
     Route: 058
     Dates: start: 20070830
  3. OPTIPEN (INSULIN PUMP) [Suspect]
     Dates: start: 20070101
  4. NOVORAPID [Concomitant]
     Dosage: DOSE: 2 TO 4
     Route: 058
  5. DEPAKENE                           /00228501/ [Concomitant]
     Route: 048
     Dates: start: 20050101

REACTIONS (3)
  - CONVULSION [None]
  - HALLUCINATION [None]
  - HYPOGLYCAEMIC SEIZURE [None]
